FAERS Safety Report 14568221 (Version 2)
Quarter: 2018Q1

REPORT INFORMATION
  Report Type: Report from Study
  Country: None (occurrence: US)
  Receive Date: 20180223
  Receipt Date: 20180307
  Transmission Date: 20180509
  Serious: Yes (Death, Life-Threatening, Hospitalization, Disabling, Other)
  Sender: FDA-Public Use
  Company Number: US-ABBVIE-18P-163-2213896-00

PATIENT
  Age: 74 Year
  Sex: Female
  Weight: 76.2 kg

DRUGS (39)
  1. ONDANSETRON [Concomitant]
     Active Substance: ONDANSETRON
     Indication: NAUSEA
     Dosage: TID PRN
     Route: 042
     Dates: start: 20171217
  2. NYSTATIN. [Concomitant]
     Active Substance: NYSTATIN
     Indication: INFECTION PROPHYLAXIS
     Dosage: TID PRN
     Route: 048
     Dates: start: 20171218, end: 20180208
  3. ALBUTEROL. [Concomitant]
     Active Substance: ALBUTEROL
     Indication: ASTHMA
     Dosage: QID PRN
     Route: 055
     Dates: start: 20171227, end: 20180210
  4. AZACITIDINE. [Suspect]
     Active Substance: AZACITIDINE
     Indication: ACUTE MYELOID LEUKAEMIA
     Dosage: DAYS 1-7 OF EACH 28-DAY CYCLE
     Route: 042
     Dates: start: 20170109, end: 20180201
  5. POTASSIUM CHLORIDE. [Concomitant]
     Active Substance: POTASSIUM CHLORIDE
     Indication: HYPOKALAEMIA
     Dosage: 10-20 MEQ; Q1H PRN
     Route: 042
     Dates: start: 20180106, end: 20180218
  6. TRAMADOL. [Concomitant]
     Active Substance: TRAMADOL
     Indication: FIBROMYALGIA
     Dosage: QID PRN
     Route: 048
     Dates: start: 20171217, end: 20180107
  7. OXYCODONE [Concomitant]
     Active Substance: OXYCODONE
     Indication: FIBROMYALGIA
  8. BENZONATATE. [Concomitant]
     Active Substance: BENZONATATE
     Indication: PNEUMONIA RESPIRATORY SYNCYTIAL VIRAL
     Dosage: 100-200 MG, QID PRN
     Route: 048
     Dates: start: 20171217, end: 20180123
  9. ONDANSETRON [Concomitant]
     Active Substance: ONDANSETRON
     Indication: VOMITING
  10. LABETALOL [Concomitant]
     Active Substance: LABETALOL\LABETALOL HYDROCHLORIDE
     Indication: HYPERTENSION
     Dosage: 5-10MG, Q2H PRN
     Route: 042
     Dates: start: 20180108, end: 20180110
  11. LABETALOL [Concomitant]
     Active Substance: LABETALOL\LABETALOL HYDROCHLORIDE
     Route: 048
     Dates: start: 20180110, end: 20180217
  12. LOPERAMIDE [Concomitant]
     Active Substance: LOPERAMIDE
     Indication: PROPHYLAXIS AGAINST DIARRHOEA
     Dosage: 2-4 MG
     Route: 048
     Dates: start: 20180111, end: 20180217
  13. VENETOCLAX. [Suspect]
     Active Substance: VENETOCLAX
     Indication: ACUTE MYELOID LEUKAEMIA
     Dosage: DAYS 1-28 OF EACH 28-DAY CYCLE
     Route: 048
     Dates: start: 20171222, end: 20171222
  14. VENETOCLAX. [Suspect]
     Active Substance: VENETOCLAX
     Dosage: DAYS 1-28 OF EACH 28-DAY CYCLE
     Route: 048
     Dates: start: 20171224, end: 20180104
  15. BACLOFEN. [Concomitant]
     Active Substance: BACLOFEN
     Indication: FIBROMYALGIA
     Route: 048
     Dates: start: 20171217
  16. ACYCLOVIR. [Concomitant]
     Active Substance: ACYCLOVIR
     Indication: ANTIVIRAL PROPHYLAXIS
     Dosage: BID PRN
     Route: 048
     Dates: start: 20171218
  17. AMLODIPINE [Concomitant]
     Active Substance: AMLODIPINE BESYLATE
     Indication: HYPERTENSION
     Dosage: QD PRN
     Route: 048
     Dates: start: 20171220
  18. DIPHENOXYLATE-ATROPINE [Concomitant]
     Active Substance: ATROPINE\DIPHENOXYLATE
     Indication: PROPHYLAXIS AGAINST DIARRHOEA
     Route: 048
     Dates: start: 20180122, end: 20180129
  19. MIRTAZAPINE. [Concomitant]
     Active Substance: MIRTAZAPINE
     Indication: DECREASED APPETITE
  20. NORMAL SALINE SOLUTION [Concomitant]
     Indication: PROPHYLAXIS
     Route: 042
     Dates: start: 20171221, end: 20171228
  21. INSULIN ASPART [Concomitant]
     Active Substance: INSULIN ASPART
     Indication: HYPERGLYCAEMIA
     Dosage: 1-8 UNITS, QID PRN
     Route: 058
     Dates: start: 20171217
  22. MAGNESIUM SULFATE. [Concomitant]
     Active Substance: MAGNESIUM SULFATE
     Indication: PROPHYLAXIS
     Dosage: QD PRN
     Route: 042
     Dates: start: 20171222, end: 20180111
  23. HEPARIN [Concomitant]
     Active Substance: HEPARIN SODIUM
     Indication: THROMBOSIS PROPHYLAXIS
     Route: 058
     Dates: start: 20180105, end: 20180216
  24. FLUTICASONE. [Concomitant]
     Active Substance: FLUTICASONE
     Indication: ASTHMA
     Route: 055
     Dates: start: 20180107, end: 20180219
  25. LEVOFLOXACIN. [Concomitant]
     Active Substance: LEVOFLOXACIN
     Indication: PYREXIA
     Dosage: 500-750 MG, QD PRN
     Route: 048
     Dates: start: 20171217, end: 20180117
  26. MAGNESIUM OXIDE. [Concomitant]
     Active Substance: MAGNESIUM OXIDE
     Indication: PROPHYLAXIS
     Dosage: 400-800 MG
     Route: 048
     Dates: start: 20171217
  27. CHLORHEXIDINE 0.12% [Concomitant]
     Indication: INFECTION PROPHYLAXIS
     Dosage: 5-15 ML, BID PRN
     Route: 048
     Dates: start: 20171218
  28. PROCHLORPERAZINE EDISYLATE. [Concomitant]
     Active Substance: PROCHLORPERAZINE EDISYLATE
     Indication: NAUSEA
     Dosage: 5-10 MG, QID PRN
     Route: 042
     Dates: start: 20171218
  29. PROCHLORPERAZINE EDISYLATE. [Concomitant]
     Active Substance: PROCHLORPERAZINE EDISYLATE
     Indication: VOMITING
  30. LORAZEPAM. [Concomitant]
     Active Substance: LORAZEPAM
     Indication: ANXIETY
     Dosage: 0.5-1MG, QD PRN
     Route: 048
     Dates: start: 20171218, end: 20180118
  31. MIRTAZAPINE. [Concomitant]
     Active Substance: MIRTAZAPINE
     Indication: DEPRESSIVE SYMPTOM
     Dosage: QD, PRN
     Route: 048
     Dates: start: 20180127, end: 20180129
  32. VENETOCLAX. [Suspect]
     Active Substance: VENETOCLAX
     Dosage: DAYS 1-28 OF EACH 28-DAY CYCLE
     Route: 048
     Dates: start: 20171223, end: 20171223
  33. VENETOCLAX. [Suspect]
     Active Substance: VENETOCLAX
     Dosage: DAYS 1-28 OF EACH 28-DAY CYCLE
     Route: 048
     Dates: start: 20180126, end: 20180215
  34. ALLOPURINOL. [Concomitant]
     Active Substance: ALLOPURINOL
     Indication: PROPHYLAXIS
     Route: 048
     Dates: start: 20171221, end: 20171229
  35. GABAPENTIN. [Concomitant]
     Active Substance: GABAPENTIN
     Indication: FIBROMYALGIA
     Dosage: TID PRN
     Route: 048
     Dates: start: 20171217
  36. POTASSIUM CHLORIDE. [Concomitant]
     Active Substance: POTASSIUM CHLORIDE
     Indication: PROPHYLAXIS
     Dosage: 20-40 MEQ
     Route: 048
     Dates: start: 20171217, end: 20180114
  37. NYSTATIN. [Concomitant]
     Active Substance: NYSTATIN
     Indication: ANTIFUNGAL PROPHYLAXIS
     Dosage: BID PRN
     Route: 061
     Dates: start: 20170106, end: 20180218
  38. OMEPRAZOLE. [Concomitant]
     Active Substance: OMEPRAZOLE
     Indication: GASTROOESOPHAGEAL REFLUX DISEASE
     Dosage: 20-40 MG, QD PRN
     Route: 048
     Dates: start: 20171222, end: 20180207
  39. OXYCODONE [Concomitant]
     Active Substance: OXYCODONE
     Indication: ABDOMINAL PAIN
     Dosage: 5-10 MG, Q4 HOURS PRN
     Route: 048
     Dates: start: 20171222, end: 20180202

REACTIONS (6)
  - Abdominal pain [Recovered/Resolved]
  - Incarcerated hernia [Recovered/Resolved]
  - Renal failure [Fatal]
  - Intra-abdominal fluid collection [Recovered/Resolved]
  - Staphylococcal infection [Recovered/Resolved]
  - Cellulitis [Recovered/Resolved]

NARRATIVE: CASE EVENT DATE: 20180105
